FAERS Safety Report 8762702 (Version 1)
Quarter: 2012Q4

REPORT INFORMATION
  Report Type: Report from Study
  Country: BW (occurrence: BW)
  Receive Date: 20120830
  Receipt Date: 20120830
  Transmission Date: 20130627
  Serious: Yes (Death, Hospitalization)
  Sender: FDA-Public Use
  Company Number: BW-GILEAD-2012-0059954

PATIENT
  Age: 37 Year
  Sex: Male

DRUGS (2)
  1. EMTRICITABINE/TENOFOVIR DISOPROXIL FUMARATE [Suspect]
     Indication: HIV INFECTION
     Dosage: UNK mg, QD
     Route: 048
     Dates: start: 20120308, end: 20120805
  2. EFAVIRENZ [Suspect]
     Dosage: 600 mg, QD
     Route: 048
     Dates: start: 20120308, end: 20120728

REACTIONS (1)
  - Hepatic failure [Fatal]
